FAERS Safety Report 14922760 (Version 1)
Quarter: 2018Q2

REPORT INFORMATION
  Report Type: Spontaneous
  Country: FR (occurrence: FR)
  Receive Date: 20180522
  Receipt Date: 20180522
  Transmission Date: 20180711
  Serious: Yes (Other)
  Sender: FDA-Public Use
  Company Number: FR-TEVA-2018-FR-893975

PATIENT
  Age: 87 Year
  Sex: Female
  Weight: 53.5 kg

DRUGS (4)
  1. ONDANSETRON KABI [Concomitant]
     Active Substance: ONDANSETRON
     Route: 042
     Dates: start: 20180117, end: 20180117
  2. CARBOPLATINE [Suspect]
     Active Substance: CARBOPLATIN
     Indication: OVARIAN CANCER
     Route: 042
     Dates: start: 20180117, end: 20180117
  3. METHYLPREDNISOLONE. [Suspect]
     Active Substance: METHYLPREDNISOLONE
     Route: 042
     Dates: start: 20180117, end: 20180117
  4. DEXCHLORPHENIRAMINE (MALEATE DE) [Concomitant]
     Route: 042
     Dates: start: 20180117, end: 20180117

REACTIONS (3)
  - Nausea [Recovered/Resolved]
  - Hypertension [Recovered/Resolved]
  - Back pain [Recovered/Resolved]

NARRATIVE: CASE EVENT DATE: 20180117
